FAERS Safety Report 6666589-7 (Version None)
Quarter: 2010Q2

REPORT INFORMATION
  Report Type: 
  Country: None (occurrence: None)
  Receive Date: 20100404
  Receipt Date: 20091223
  Transmission Date: 20101027
  Serious: No
  Sender: FDA-Public Use
  Company Number: US-ALLERGAN-0917516US

PATIENT
  Sex: Female

DRUGS (8)
  1. PRED FORTE [Suspect]
     Indication: POSTOPERATIVE CARE
     Dosage: UNK
     Dates: start: 20091104
  2. PRED FORTE [Suspect]
     Dosage: UNK
     Route: 047
  3. ACULAR LS [Suspect]
     Indication: POSTOPERATIVE CARE
     Dosage: UNK
     Route: 047
     Dates: start: 20091104
  4. ZYMAR [Suspect]
     Indication: POSTOPERATIVE CARE
     Dosage: UNK
     Route: 047
     Dates: start: 20091104
  5. ZOCOR [Concomitant]
     Indication: BLOOD CHOLESTEROL INCREASED
  6. ASPIRIN [Concomitant]
  7. LANTUS [Concomitant]
     Indication: TYPE 1 DIABETES MELLITUS
  8. NOVOLOG [Concomitant]
     Indication: TYPE 1 DIABETES MELLITUS

REACTIONS (1)
  - DIARRHOEA [None]
